FAERS Safety Report 8926303 (Version 1)
Quarter: 2012Q4

REPORT INFORMATION
  Report Type: 
  Country: US (occurrence: US)
  Receive Date: 20121127
  Receipt Date: 20121127
  Transmission Date: 20130627
  Serious: Yes (Death, Hospitalization)
  Sender: FDA-Public Use
  Company Number: US-GLAXOSMITHKLINE-A0778539A

PATIENT
  Age: 81 Year
  Sex: Female

DRUGS (1)
  1. AVANDIA [Suspect]
     Indication: DIABETES MELLITUS
     Dosage: 2MG Per day
     Route: 048
     Dates: start: 200511, end: 200612

REACTIONS (6)
  - Cardio-respiratory arrest [Fatal]
  - Acute myocardial infarction [Unknown]
  - Cardiac failure [Unknown]
  - Cardiac arrest [Unknown]
  - Arteriosclerosis coronary artery [Unknown]
  - Supraventricular tachycardia [Unknown]
